FAERS Safety Report 7509853-1 (Version None)
Quarter: 2011Q2

REPORT INFORMATION
  Report Type: 
  Country: None (occurrence: None)
  Receive Date: 20110527
  Receipt Date: 20110516
  Transmission Date: 20111010
  Serious: Yes (Other)
  Sender: FDA-Public Use
  Company Number: B0710564A

PATIENT
  Sex: Female

DRUGS (4)
  1. CELESTONE [Concomitant]
     Dates: start: 20100721, end: 20100721
  2. DESLORATADINE [Concomitant]
     Route: 048
  3. NORDETTE-21 [Concomitant]
     Indication: CONTRACEPTION
     Route: 048
  4. AVAMYS [Suspect]
     Route: 045
     Dates: start: 20100721, end: 20100722

REACTIONS (3)
  - URTICARIA [None]
  - HYPERSENSITIVITY [None]
  - RASH ERYTHEMATOUS [None]
